FAERS Safety Report 19753078 (Version 2)
Quarter: 2021Q3

REPORT INFORMATION
  Report Type: Spontaneous
  Country: US (occurrence: US)
  Receive Date: 20210826
  Receipt Date: 20210907
  Transmission Date: 20211014
  Serious: Yes (Hospitalization)
  Sender: FDA-Public Use
  Company Number: US-TEVA-2021-US-1944724

PATIENT
  Age: 46 Year
  Sex: Female

DRUGS (4)
  1. CLOZAPINE. [Suspect]
     Active Substance: CLOZAPINE
     Indication: BIPOLAR DISORDER
     Dosage: 150 MILLIGRAM DAILY; TITRATED TO A DOSE OF 150 MG ORALLY DAILY
     Route: 048
  2. LITHIUM. [Suspect]
     Active Substance: LITHIUM
     Indication: BIPOLAR DISORDER
     Dosage: 300 MILLIGRAM DAILY; EVERY MORNING
     Route: 048
  3. LITHIUM. [Suspect]
     Active Substance: LITHIUM
     Dosage: 450 MILLIGRAM DAILY; EVERY EVENING
     Route: 048
  4. RISPERIDONE. [Suspect]
     Active Substance: RISPERIDONE
     Indication: BIPOLAR DISORDER
     Dosage: 6 MILLIGRAM DAILY;
     Route: 048

REACTIONS (3)
  - Off label use [Unknown]
  - Hepatic encephalopathy [Recovered/Resolved]
  - Liver injury [Recovering/Resolving]
